FAERS Safety Report 10112042 (Version 2)
Quarter: 2014Q2

REPORT INFORMATION
  Report Type: Spontaneous
  Country: HU (occurrence: HU)
  Receive Date: 20140425
  Receipt Date: 20140430
  Transmission Date: 20141212
  Serious: Yes (Death, Hospitalization)
  Sender: FDA-Public Use
  Company Number: HU-CELGENEUS-076-21880-14043034

PATIENT
  Age: 60 Year
  Sex: Male
  Weight: 83.6 kg

DRUGS (7)
  1. REVLIMID [Suspect]
     Indication: PLASMA CELL MYELOMA
     Dosage: 25 MILLIGRAM
     Route: 048
     Dates: start: 20120709, end: 20130505
  2. ELOTUZUMAB [Suspect]
     Indication: PLASMA CELL MYELOMA
     Dosage: 800 MILLIGRAM
     Route: 041
     Dates: start: 20120709, end: 20130429
  3. DEXAMETHASONE [Suspect]
     Indication: PLASMA CELL MYELOMA
     Dosage: 40 MILLIGRAM
     Route: 048
     Dates: start: 20120609, end: 20130506
  4. DEXAMETHASONE [Suspect]
     Dosage: 8 MILLIGRAM
     Route: 041
     Dates: start: 20120709, end: 20130429
  5. LORATADIN [Concomitant]
     Indication: PRODUCT USED FOR UNKNOWN INDICATION
     Route: 065
     Dates: start: 20070101
  6. CO-ENALAPRIL [Concomitant]
     Indication: PRODUCT USED FOR UNKNOWN INDICATION
     Route: 065
     Dates: start: 20040120
  7. QUAMATEL [Concomitant]
     Indication: PRODUCT USED FOR UNKNOWN INDICATION
     Route: 065
     Dates: start: 20130101

REACTIONS (1)
  - Sepsis [Fatal]
